FAERS Safety Report 20790841 (Version 1)
Quarter: 2022Q2

REPORT INFORMATION
  Report Type: Spontaneous
  Country: US (occurrence: US)
  Receive Date: 20220505
  Receipt Date: 20220505
  Transmission Date: 20220721
  Serious: No
  Sender: FDA-Public Use
  Company Number: US-LUPIN PHARMACEUTICALS INC.-2022-06292

PATIENT
  Sex: Female

DRUGS (1)
  1. DOXYCYCLINE [Suspect]
     Active Substance: DOXYCYCLINE
     Indication: Rickettsiosis
     Dosage: UNK (ORAL SUSPENSION 25MG/5ML)
     Route: 048
     Dates: start: 202204

REACTIONS (5)
  - Reaction to excipient [Unknown]
  - Hot flush [Unknown]
  - Chills [Unknown]
  - Abdominal pain lower [Unknown]
  - Malaise [Unknown]

NARRATIVE: CASE EVENT DATE: 20220401
